FAERS Safety Report 6450181-3 (Version None)
Quarter: 2009Q4

REPORT INFORMATION
  Report Type: 
  Country: None (occurrence: None)
  Receive Date: 20091123
  Receipt Date: 20091113
  Transmission Date: 20100525
  Serious: Yes (Hospitalization)
  Sender: FDA-Public Use
  Company Number: US-ASTRAZENECA-2009SE26312

PATIENT
  Age: 954 Month
  Sex: Male

DRUGS (5)
  1. PRILOSEC OTC [Suspect]
     Indication: GASTROOESOPHAGEAL REFLUX DISEASE
     Route: 048
     Dates: start: 20070101
  2. PRILOSEC OTC [Suspect]
     Route: 048
     Dates: start: 20090901
  3. ATENOLOL [Concomitant]
  4. FLUCONAZOLE [Concomitant]
  5. ANTIBIOTICS [Concomitant]

REACTIONS (2)
  - BLOOD ELECTROLYTES DECREASED [None]
  - CONSTIPATION [None]
